FAERS Safety Report 20911538 (Version 1)
Quarter: 2022Q2

REPORT INFORMATION
  Report Type: Spontaneous
  Country: US (occurrence: US)
  Receive Date: 20220603
  Receipt Date: 20220603
  Transmission Date: 20220721
  Serious: Yes (Other)
  Sender: FDA-Public Use
  Company Number: US-MYLANLABS-2022M1041742

PATIENT
  Age: 53 Year
  Sex: Female

DRUGS (3)
  1. PACLITAXEL [Suspect]
     Active Substance: PACLITAXEL
     Indication: Ovarian cancer stage III
     Dosage: UNK, QW
     Route: 065
  2. NIRAPARIB [Suspect]
     Active Substance: NIRAPARIB
     Indication: Ovarian cancer stage III
     Dosage: UNK UNK, CYCLE
     Route: 065
  3. BEVACIZUMAB [Suspect]
     Active Substance: BEVACIZUMAB
     Indication: Ovarian cancer stage III
     Dosage: UNK UNK, QW
     Route: 065

REACTIONS (1)
  - Drug ineffective [Unknown]
